FAERS Safety Report 4754706-5 (Version None)
Quarter: 2005Q3

REPORT INFORMATION
  Report Type: 
  Country: None (occurrence: None)
  Receive Date: 20050825
  Receipt Date: 20050825
  Transmission Date: 20060218
  Serious: Yes (Life-Threatening, Hospitalization)
  Sender: FDA-Public Use
  Company Number: None

PATIENT
  Age: 60 Year
  Sex: Male
  Weight: 92.5338 kg

DRUGS (9)
  1. MEGESTROL    40MG/ML    BRISTOL-MYERS ONCOLOGY [Suspect]
     Indication: APPETITE DISORDER
     Dosage: 1 TEASPOONFUL  Q AM  PO
     Route: 048
     Dates: start: 20050322, end: 20050727
  2. SENNOSIDES [Concomitant]
  3. ASPIRIN [Concomitant]
  4. FELODIPINE [Concomitant]
  5. NORTRIPTYLINE HCL [Concomitant]
  6. HYDROCHLOROTHIAZIDE [Concomitant]
  7. MULTI-VITAMIN [Concomitant]
  8. POTASSIUM CHLORIDE [Concomitant]
  9. ATTENOLOL [Concomitant]

REACTIONS (4)
  - DEMENTIA [None]
  - HYPERCOAGULATION [None]
  - NEOPLASM MALIGNANT [None]
  - PULMONARY EMBOLISM [None]
